FAERS Safety Report 13341165 (Version 1)
Quarter: 2017Q1

REPORT INFORMATION
  Report Type: Spontaneous
  Country: NO (occurrence: NO)
  Receive Date: 20170316
  Receipt Date: 20170316
  Transmission Date: 20170428
  Serious: Yes (Other)
  Sender: FDA-Public Use
  Company Number: NO-VIIV HEALTHCARE LIMITED-NO2017GSK035688

PATIENT
  Sex: Male

DRUGS (1)
  1. TRIUMEQ [Suspect]
     Active Substance: ABACAVIR SULFATE\DOLUTEGRAVIR SODIUM\LAMIVUDINE
     Indication: PRODUCT USED FOR UNKNOWN INDICATION

REACTIONS (12)
  - Ear pain [Unknown]
  - Pain [Unknown]
  - Decreased appetite [Unknown]
  - Dyspnoea [Unknown]
  - Ear discomfort [Unknown]
  - Asthenia [Unknown]
  - Respiratory tract infection [Unknown]
  - Restless legs syndrome [Unknown]
  - Pyrexia [Unknown]
  - Malaise [Unknown]
  - Arthralgia [Unknown]
  - Weight decreased [Unknown]
